FAERS Safety Report 6691299-X (Version None)
Quarter: 2010Q2

REPORT INFORMATION
  Report Type: 
  Country: None (occurrence: None)
  Receive Date: 20100422
  Receipt Date: 20100413
  Transmission Date: 20101027
  Serious: Yes (Hospitalization, Other)
  Sender: FDA-Public Use
  Company Number: DE-JNJFOC-20100303812

PATIENT
  Age: 10 Year
  Sex: Male

DRUGS (4)
  1. CONCERTA [Suspect]
     Indication: ATTENTION DEFICIT/HYPERACTIVITY DISORDER
     Route: 048
     Dates: start: 20090914
  2. CONCERTA [Suspect]
     Route: 048
     Dates: start: 20090914
  3. ZAPPELIN [Concomitant]
     Route: 065
  4. EQUASYM [Concomitant]
     Route: 065

REACTIONS (2)
  - COLITIS ULCERATIVE [None]
  - DEPRESSED MOOD [None]
